FAERS Safety Report 6413647-8 (Version None)
Quarter: 2009Q4

REPORT INFORMATION
  Report Type: 
  Country: None (occurrence: None)
  Receive Date: 20091026
  Receipt Date: 20090922
  Transmission Date: 20100525
  Serious: No
  Sender: FDA-Public Use
  Company Number: US-BAYER-200933992NA

PATIENT
  Age: 37 Year
  Sex: Female

DRUGS (1)
  1. MIRENA [Suspect]
     Indication: CONTRACEPTION
     Dosage: CONTINUOUS
     Route: 015
     Dates: start: 20090601

REACTIONS (5)
  - ABDOMINAL PAIN [None]
  - BREAST TENDERNESS [None]
  - HEADACHE [None]
  - MOOD SWINGS [None]
  - RESPIRATORY DISORDER [None]
